FAERS Safety Report 9377424 (Version 1)
Quarter: 2013Q3

REPORT INFORMATION
  Report Type: Report from Study
  Country: US (occurrence: US)
  Receive Date: 20130701
  Receipt Date: 20130701
  Transmission Date: 20140515
  Serious: Yes (Other)
  Sender: FDA-Public Use
  Company Number: US-ASTELLAS-2013US006739

PATIENT
  Age: 77 Year
  Sex: Male

DRUGS (3)
  1. ERLOTINIB TABLET [Suspect]
     Indication: NON-SMALL CELL LUNG CANCER
     Dosage: 150 MG, UID/QD
     Route: 048
  2. ERLOTINIB TABLET [Suspect]
     Dosage: 75 MG, UID/QD
     Route: 048
     Dates: start: 20130420, end: 20130523
  3. ERLOTINIB TABLET [Suspect]
     Dosage: 150 MG, UID/QD
     Route: 048
     Dates: start: 20130616

REACTIONS (5)
  - Blindness [Recovered/Resolved]
  - Eye discharge [Recovered/Resolved]
  - Dry eye [Not Recovered/Not Resolved]
  - Eye irritation [Not Recovered/Not Resolved]
  - Diarrhoea [Recovered/Resolved]
